FAERS Safety Report 9928325 (Version 1)
Quarter: 2014Q1

REPORT INFORMATION
  Report Type: Spontaneous
  Country: US (occurrence: None)
  Receive Date: 20140226
  Receipt Date: 20140226
  Transmission Date: 20141002
  Serious: Yes (Disabling)
  Sender: FDA-Public Use
  Company Number: None

PATIENT
  Age: 51 Year
  Sex: Female
  Weight: 58.06 kg

DRUGS (1)
  1. OFLOXACIN [Suspect]
     Indication: OTITIS EXTERNA
     Dosage: 5 DROPS, TWICE DAILY, INTO THE EAR
     Dates: start: 20130906, end: 20130912

REACTIONS (2)
  - Headache [None]
  - Pain [None]
